FAERS Safety Report 9105483 (Version 2)
Quarter: 2013Q1

REPORT INFORMATION
  Report Type: Spontaneous
  Country: US (occurrence: US)
  Receive Date: 20130220
  Receipt Date: 20130227
  Transmission Date: 20140127
  Serious: No
  Sender: FDA-Public Use
  Company Number: US-PFIZER INC-2013063274

PATIENT
  Age: 78 Year
  Sex: Female
  Weight: 43.08 kg

DRUGS (8)
  1. LYRICA [Suspect]
     Indication: BACK PAIN
     Dosage: 25 MG, 1X/DAY
     Dates: start: 201212
  2. LYRICA [Suspect]
     Indication: SCIATICA
     Dosage: 50 MG, 1X/DAY
  3. AMLODIPINE/HYDROCHLOROTHIAZIDE [Concomitant]
     Dosage: 5/50MG DAILY
  4. TRAZODONE [Concomitant]
     Indication: SLEEP DISORDER
     Dosage: 50 MG, 1X/DAY
  5. ASPIRIN [Concomitant]
     Indication: ANTICOAGULANT THERAPY
     Dosage: 81 MG, 1X/DAY
  6. VITAMIN E [Concomitant]
     Dosage: UNK, 1X/DAY
  7. VITAMIN D [Concomitant]
     Dosage: UNK, 1X/DAY
  8. TUMS [Concomitant]
     Indication: OSTEOPOROSIS
     Dosage: 500 MG, 1X/DAY

REACTIONS (2)
  - Drug ineffective [Unknown]
  - Skin discolouration [Unknown]
